FAERS Safety Report 8223896-4 (Version None)
Quarter: 2012Q1

REPORT INFORMATION
  Report Type: 
  Country: None (occurrence: None)
  Receive Date: 20120321
  Receipt Date: 20120319
  Transmission Date: 20120608
  Serious: Yes (Other)
  Sender: FDA-Public Use
  Company Number: US-PFIZER INC-2012071547

PATIENT
  Sex: Male
  Weight: 70 kg

DRUGS (5)
  1. ALPRAZOLAM [Suspect]
     Dosage: 0.75 MG, AS NEEDED
     Route: 048
  2. ALPRAZOLAM [Suspect]
     Dosage: 1 MG, AS NEEDED
     Route: 048
  3. ALPRAZOLAM [Suspect]
     Indication: ANXIETY
     Dosage: .5 MG, AS NEEDED
     Route: 048
  4. ALPRAZOLAM [Suspect]
     Indication: INSOMNIA
     Dosage: 0.25 MG, AS NEEDED
     Route: 048
  5. AMBIEN [Concomitant]
     Indication: INSOMNIA
     Dosage: UNK, AS NEEDED

REACTIONS (3)
  - DRUG INEFFECTIVE [None]
  - PANIC ATTACK [None]
  - BLOOD CHOLESTEROL INCREASED [None]
